FAERS Safety Report 7802329-3 (Version None)
Quarter: 2011Q4

REPORT INFORMATION
  Report Type: 
  Country: None (occurrence: None)
  Receive Date: 20111007
  Receipt Date: 20110930
  Transmission Date: 20120403
  Serious: Yes (Hospitalization)
  Sender: FDA-Public Use
  Company Number: US-JNJFOC-20110803619

PATIENT
  Sex: Female
  Weight: 73.03 kg

DRUGS (12)
  1. DOXORUBICIN HCL [Suspect]
     Route: 042
     Dates: start: 20110510
  2. PRAVASTATIN [Concomitant]
     Indication: BLOOD CHOLESTEROL INCREASED
     Route: 048
     Dates: start: 20050101
  3. FOLIC ACID [Concomitant]
     Indication: VITAMIN SUPPLEMENTATION
     Route: 048
  4. MAGNESIUM OXIDE [Concomitant]
     Indication: MINERAL SUPPLEMENTATION
     Route: 048
  5. DOXORUBICIN HCL [Suspect]
     Route: 042
     Dates: start: 20110201
  6. DOXORUBICIN HCL [Suspect]
     Route: 042
     Dates: start: 20110419
  7. DOXORUBICIN HCL [Suspect]
     Route: 042
     Dates: start: 20110329
  8. DOXORUBICIN HCL [Suspect]
     Route: 042
     Dates: start: 20110222
  9. POTASSIUM [Concomitant]
     Indication: MINERAL SUPPLEMENTATION
     Route: 048
     Dates: start: 20050101
  10. DOXORUBICIN HCL [Suspect]
     Indication: OVARIAN CANCER
     Route: 042
     Dates: start: 20110818
  11. DOXORUBICIN HCL [Suspect]
     Route: 042
     Dates: start: 20110712
  12. ASPIRIN [Concomitant]
     Indication: THROMBOSIS
     Route: 048
     Dates: start: 20050101

REACTIONS (3)
  - DYSPHAGIA [None]
  - GASTROOESOPHAGEAL REFLUX DISEASE [None]
  - BACTERIAL INFECTION [None]
